FAERS Safety Report 12284863 (Version 1)
Quarter: 2016Q2

REPORT INFORMATION
  Report Type: Spontaneous
  Country: US (occurrence: US)
  Receive Date: 20160420
  Receipt Date: 20160420
  Transmission Date: 20160815
  Serious: No
  Sender: FDA-Public Use
  Company Number: US-TEVA-648741USA

PATIENT

DRUGS (1)
  1. ZECUITY [Suspect]
     Active Substance: SUMATRIPTAN SUCCINATE
     Dosage: 6.5 MG / 4 HOURS
     Route: 062

REACTIONS (8)
  - Application site erythema [Unknown]
  - Drug ineffective [Unknown]
  - Application site paraesthesia [Unknown]
  - Application site pruritus [Unknown]
  - Device leakage [Unknown]
  - Application site irritation [Unknown]
  - Application site rash [Unknown]
  - Application site pain [Unknown]
